FAERS Safety Report 16851735 (Version 4)
Quarter: 2019Q4

REPORT INFORMATION
  Report Type: Report from Study
  Country: US (occurrence: US)
  Receive Date: 20190925
  Receipt Date: 20191202
  Transmission Date: 20200122
  Serious: Yes (Hospitalization, Other)
  Sender: FDA-Public Use
  Company Number: US-PFIZER INC-2019408923

PATIENT
  Age: 69 Year
  Sex: Female

DRUGS (1)
  1. IBRANCE [Suspect]
     Active Substance: PALBOCICLIB
     Indication: BREAST CANCER FEMALE
     Dosage: 125 MG, CYCLIC [QD (ONCE A DAY), 21 DAYS ON, 7 OFF]
     Route: 048
     Dates: start: 20190828

REACTIONS (15)
  - Neuropathy peripheral [Unknown]
  - Platelet count decreased [Unknown]
  - Epistaxis [Unknown]
  - Mastitis [Unknown]
  - Oral pain [Unknown]
  - Weight increased [Unknown]
  - Neutrophil count decreased [Unknown]
  - Appetite disorder [Unknown]
  - White blood cell count decreased [Unknown]
  - Hot flush [Unknown]
  - Night sweats [Unknown]
  - Confusional state [Unknown]
  - Taste disorder [Unknown]
  - Constipation [Unknown]
  - Pruritus [Unknown]

NARRATIVE: CASE EVENT DATE: 2019
